FAERS Safety Report 7557290-6 (Version None)
Quarter: 2011Q2

REPORT INFORMATION
  Report Type: 
  Country: None (occurrence: None)
  Receive Date: 20110620
  Receipt Date: 20110614
  Transmission Date: 20111010
  Serious: Yes (Hospitalization)
  Sender: FDA-Public Use
  Company Number: US-ROCHE-781359

PATIENT
  Sex: Female
  Weight: 78.5 kg

DRUGS (12)
  1. VICODIN [Concomitant]
     Dosage: TDD:5/500 MG
     Dates: start: 20110127
  2. TRASTUZUMAB [Suspect]
     Route: 042
     Dates: start: 20100917
  3. TRASTUZUMAB [Suspect]
     Dosage: DOSE FORM:VIALS,LAST DOSE PRIOR TO SAE:27 MAY 2011,TOTAL DOSE:438 MG
     Route: 042
  4. ATIVAN [Concomitant]
     Dates: start: 20110524
  5. BEVACIZUMAB [Suspect]
     Dosage: LAST DOSE PRIOR TO SAE:27 MAY 2011, DOSE FORM:VIALS,TOTAL DOSE:1095 MG
     Route: 042
     Dates: start: 20100917
  6. DOCETAXEL [Suspect]
     Dosage: DOSE FORM:VIALS,LAST DOSE PRIOR TO SAE:30 DECEMBER 2010,TOTAL DOSE:137 MG
     Route: 042
     Dates: start: 20100917
  7. TEGRETOL [Concomitant]
     Dates: start: 20101210
  8. CARBOPLATIN [Suspect]
     Dosage: DOSE: 06 AUC,FORM;VIALS,LAST DOSE PRIOR TO SAE:30 DECEMBER 2010,TOTAL DOSE:8/6 MG
     Route: 042
     Dates: start: 20100917
  9. MINOCYCLINE HCL [Concomitant]
     Dates: start: 20110310
  10. PLAQUENIL [Concomitant]
     Dates: start: 20110204
  11. PREDNISONE [Concomitant]
     Dates: start: 20110204, end: 20110509
  12. AZULFIDINE [Concomitant]
     Dates: start: 20110310

REACTIONS (1)
  - PERICARDITIS [None]
